FAERS Safety Report 8619333-8 (Version None)
Quarter: 2012Q3

REPORT INFORMATION
  Report Type: 
  Country: None (occurrence: None)
  Receive Date: 20120824
  Receipt Date: 20120821
  Transmission Date: 20120928
  Serious: Yes (Other)
  Sender: FDA-Public Use
  Company Number: CN-PFIZER INC-2012205862

PATIENT
  Age: 70 Year
  Sex: Female

DRUGS (1)
  1. CORDARONE [Suspect]
     Indication: ARRHYTHMIA
     Dosage: 0.2 G, DAIY
     Route: 048
     Dates: start: 20090116, end: 20090219

REACTIONS (5)
  - ARRHYTHMIA SUPRAVENTRICULAR [None]
  - VOMITING [None]
  - ATRIAL FIBRILLATION [None]
  - ATRIOVENTRICULAR BLOCK [None]
  - NAUSEA [None]
